FAERS Safety Report 7556329-1 (Version None)
Quarter: 2011Q2

REPORT INFORMATION
  Report Type: 
  Country: None (occurrence: None)
  Receive Date: 20110620
  Receipt Date: 20110609
  Transmission Date: 20111010
  Serious: No
  Sender: FDA-Public Use
  Company Number: FR-JNJFOC-20110605616

PATIENT
  Age: 58 Year
  Sex: Female

DRUGS (5)
  1. DURAGESIC-100 [Suspect]
     Indication: BACK PAIN
     Route: 062
     Dates: start: 20110601
  2. MORPHINE SULFATE [Concomitant]
  3. FORLAX [Concomitant]
  4. ACETAMINOPHEN [Concomitant]
  5. TEMAZEPAM [Concomitant]

REACTIONS (4)
  - CONSTIPATION [None]
  - OFF LABEL USE [None]
  - PRODUCT QUALITY ISSUE [None]
  - WRONG TECHNIQUE IN DRUG USAGE PROCESS [None]
